FAERS Safety Report 23409839 (Version 3)
Quarter: 2024Q2

REPORT INFORMATION
  Report Type: Spontaneous
  Country: US (occurrence: US)
  Receive Date: 20240117
  Receipt Date: 20240509
  Transmission Date: 20240716
  Serious: No
  Sender: FDA-Public Use
  Company Number: US-JNJFOC-20240102087

PATIENT
  Age: 22 Year
  Sex: Male
  Weight: 91.254 kg

DRUGS (1)
  1. REMICADE [Suspect]
     Active Substance: INFLIXIMAB
     Indication: Crohn^s disease
     Route: 041
     Dates: start: 20230102

REACTIONS (3)
  - Product dose omission issue [Unknown]
  - Product container issue [Unknown]
  - Off label use [Unknown]

NARRATIVE: CASE EVENT DATE: 20240102
